FAERS Safety Report 5389914-6 (Version None)
Quarter: 2007Q3

REPORT INFORMATION
  Report Type: 
  Country: None (occurrence: None)
  Receive Date: 20070716
  Receipt Date: 20070716
  Transmission Date: 20080115
  Serious: Yes (Life-Threatening, Hospitalization)
  Sender: FDA-Public Use
  Company Number: None

PATIENT
  Age: 77 Year
  Sex: Female

DRUGS (9)
  1. WARFARIN SODIUM [Suspect]
     Indication: ATRIAL FIBRILLATION
     Dosage: DAILY PO
     Route: 048
  2. AMIODARONE HCL [Concomitant]
  3. DIGOXIN [Concomitant]
  4. PANTOPRAZOLE SODIUM [Concomitant]
  5. LEVOTHYROXINE SODIUM [Concomitant]
  6. FLUOXETINE [Concomitant]
  7. MIRAPEX [Concomitant]
  8. DIOVAN [Concomitant]
  9. NABUMETONE [Concomitant]

REACTIONS (4)
  - COAGULOPATHY [None]
  - INTERNATIONAL NORMALISED RATIO INCREASED [None]
  - MENTAL STATUS CHANGES [None]
  - SUBDURAL HAEMATOMA [None]
